FAERS Safety Report 8128543-8 (Version None)
Quarter: 2012Q1

REPORT INFORMATION
  Report Type: 
  Country: None (occurrence: None)
  Receive Date: 20120210
  Receipt Date: 20111212
  Transmission Date: 20120608
  Serious: No
  Sender: FDA-Public Use
  Company Number: US-BRISTOL-MYERS SQUIBB COMPANY-16269987

PATIENT
  Age: 58 Year
  Sex: Female

DRUGS (1)
  1. ORENCIA [Suspect]
     Dosage: RECEIVED FOR 3 MONTHS LAST INF:2DEC2011

REACTIONS (4)
  - ALOPECIA [None]
  - NASOPHARYNGITIS [None]
  - PYREXIA [None]
  - GAIT DISTURBANCE [None]
